FAERS Safety Report 26176244 (Version 1)
Quarter: 2025Q4

REPORT INFORMATION
  Report Type: Report from Study
  Country: CA (occurrence: CA)
  Receive Date: 20251218
  Receipt Date: 20251218
  Transmission Date: 20260118
  Serious: Yes (Other)
  Sender: AMARIN PHARMA, INC.
  Company Number: CA-Amarin Pharma  Inc-2025AMR000773

PATIENT
  Age: 63 Year
  Sex: Male

DRUGS (1)
  1. VASCEPA [Suspect]
     Active Substance: ICOSAPENT ETHYL
     Indication: Cardiovascular disorder
     Dates: start: 20240531

REACTIONS (2)
  - Type 2 diabetes mellitus [Unknown]
  - Coronary artery disease [Unknown]
